FAERS Safety Report 7295783-X (Version None)
Quarter: 2011Q1

REPORT INFORMATION
  Report Type: 
  Country: None (occurrence: None)
  Receive Date: 20110216
  Receipt Date: 20110208
  Transmission Date: 20110831
  Serious: Yes (Other)
  Sender: FDA-Public Use
  Company Number: BR-ROCHE-712805

PATIENT
  Sex: Female
  Weight: 58 kg

DRUGS (3)
  1. ROACUTAN [Suspect]
     Indication: ACNE
     Dosage: 1 IN THE MORNING AND 1 IN THE EVENEING
     Route: 048
     Dates: start: 20100607, end: 20101201
  2. DIANE 35 [Concomitant]
  3. NEUTROFER [Concomitant]

REACTIONS (6)
  - EYE PAIN [None]
  - ACNE [None]
  - BLINDNESS [None]
  - VISUAL IMPAIRMENT [None]
  - PHOTOPSIA [None]
  - DEPRESSION [None]
